FAERS Safety Report 11745310 (Version 1)
Quarter: 2015Q4

REPORT INFORMATION
  Report Type: Spontaneous
  Country: TR (occurrence: TR)
  Receive Date: 20151117
  Receipt Date: 20151117
  Transmission Date: 20160304
  Serious: Yes (Other)
  Sender: FDA-Public Use
  Company Number: TR-ACCORD-035426

PATIENT
  Age: 26 Year
  Sex: Female

DRUGS (2)
  1. CALCIUM FOLINATE/FOLINIC ACID [Suspect]
     Active Substance: LEUCOVORIN CALCIUM
     Indication: GASTRIC CANCER
     Dosage: AT 29 WEEKS OF GESTATION, FIVE?DAY TREATMENT UNTIL DELIVERY
  2. FLUOROURACIL. [Suspect]
     Active Substance: FLUOROURACIL
     Indication: GASTRIC CANCER
     Dosage: GIVEN AT 29 WEEKS OF GESTATION, FIVE DAY TREATMENT UNTIL DELIVERY

REACTIONS (2)
  - Premature delivery [Unknown]
  - Maternal exposure during pregnancy [Unknown]
